FAERS Safety Report 9995917 (Version 2)
Quarter: 2014Q2

REPORT INFORMATION
  Report Type: Spontaneous
  Country: DK (occurrence: DK)
  Receive Date: 20140311
  Receipt Date: 20140423
  Transmission Date: 20141212
  Serious: Yes (Hospitalization)
  Sender: FDA-Public Use
  Company Number: DK-SA-2014SA029536

PATIENT
  Sex: Female

DRUGS (2)
  1. AUBAGIO [Suspect]
     Indication: MULTIPLE SCLEROSIS
     Route: 048
     Dates: start: 20140108, end: 20140226
  2. PARACETAMOL [Concomitant]
     Indication: PAIN
     Dosage: TAKEN FOR A LONG TIME; FREQUENCY: PN
     Route: 048

REACTIONS (5)
  - Pyrexia [Recovering/Resolving]
  - Hypersensitivity [Unknown]
  - Asthenia [Unknown]
  - White blood cell count [Unknown]
  - Rhinorrhoea [Unknown]
